FAERS Safety Report 13258026 (Version 1)
Quarter: 2017Q1

REPORT INFORMATION
  Report Type: Report from Study
  Country: US (occurrence: US)
  Receive Date: 20170221
  Receipt Date: 20170221
  Transmission Date: 20170428
  Serious: Yes (Other)
  Sender: FDA-Public Use
  Company Number: US-GILEAD-2017-0258397

PATIENT
  Age: 68 Year
  Sex: Female

DRUGS (1)
  1. LEDIPASVIR/SOFOSBUVIR [Suspect]
     Active Substance: LEDIPASVIR\SOFOSBUVIR
     Indication: CHRONIC HEPATITIS C
     Dosage: 1 DF, QD
     Route: 048
     Dates: start: 20150314, end: 20150914

REACTIONS (6)
  - Hepatic lesion [Unknown]
  - Lyme disease [Not Recovered/Not Resolved]
  - Herpes zoster [Unknown]
  - Tooth fracture [Unknown]
  - Infection [Not Recovered/Not Resolved]
  - Thyroid disorder [Unknown]
